FAERS Safety Report 11327800 (Version 1)
Quarter: 2015Q3

REPORT INFORMATION
  Report Type: Report from Study
  Country: US (occurrence: US)
  Receive Date: 20150731
  Receipt Date: 20150731
  Transmission Date: 20151125
  Serious: No
  Sender: FDA-Public Use
  Company Number: PHHY2015US042632

PATIENT
  Age: 60 Year
  Sex: Female

DRUGS (6)
  1. REGADENOSON [Concomitant]
     Active Substance: REGADENOSON
     Indication: CARDIAC STRESS TEST
     Dosage: UNK
     Route: 065
     Dates: start: 20140626, end: 20140626
  2. AMINOPHYLLINE. [Concomitant]
     Active Substance: AMINOPHYLLINE
     Indication: CHEST PAIN
  3. ASPIRIN. [Concomitant]
     Active Substance: ASPIRIN
     Indication: MUSCULOSKELETAL CHEST PAIN
     Dosage: UNK
     Route: 065
     Dates: start: 20140625, end: 20140625
  4. AMINOPHYLLINE. [Concomitant]
     Active Substance: AMINOPHYLLINE
     Indication: STRESS
     Dosage: UNK
     Route: 065
     Dates: start: 20140626, end: 20140626
  5. GILENYA [Suspect]
     Active Substance: FINGOLIMOD HYDROCHLORIDE
     Indication: MULTIPLE SCLEROSIS
     Dosage: UNK
     Route: 065
  6. SALINE [Concomitant]
     Active Substance: SODIUM CHLORIDE
     Indication: CARDIAC STRESS TEST
     Dosage: UNK
     Route: 065
     Dates: start: 20140626, end: 20140626

REACTIONS (5)
  - Multiple sclerosis relapse [Recovered/Resolved]
  - Pruritus [Unknown]
  - Lymphocyte count decreased [Unknown]
  - Diarrhoea [Recovered/Resolved]
  - Flushing [Unknown]

NARRATIVE: CASE EVENT DATE: 20130415
